FAERS Safety Report 12113909 (Version 1)
Quarter: 2016Q1

REPORT INFORMATION
  Report Type: Spontaneous
  Country: US (occurrence: US)
  Receive Date: 20160225
  Receipt Date: 20160225
  Transmission Date: 20160526
  Serious: Yes (Other)
  Sender: FDA-Public Use
  Company Number: PHHY2016US023959

PATIENT
  Sex: Male

DRUGS (2)
  1. DABRAFENIB [Suspect]
     Active Substance: DABRAFENIB
     Indication: LUNG ADENOCARCINOMA METASTATIC
     Dosage: 150 MG, BID
     Route: 048
  2. PAZOPANIB [Suspect]
     Active Substance: PAZOPANIB
     Indication: LUNG ADENOCARCINOMA METASTATIC
     Dosage: 800 MG, QD
     Route: 048

REACTIONS (6)
  - Skin burning sensation [Recovered/Resolved with Sequelae]
  - Eccrine squamous syringometaplasia [Recovered/Resolved with Sequelae]
  - Skin depigmentation [Unknown]
  - Rash [Recovered/Resolved with Sequelae]
  - Recall phenomenon [Recovered/Resolved with Sequelae]
  - Skin exfoliation [Recovered/Resolved with Sequelae]
